FAERS Safety Report 15321802 (Version 1)
Quarter: 2018Q3

REPORT INFORMATION
  Report Type: Spontaneous
  Country: US (occurrence: US)
  Receive Date: 20180821
  Receipt Date: 20180821
  Transmission Date: 20181010
  Serious: Yes (Other)
  Sender: FDA-Public Use
  Company Number: None

PATIENT
  Age: 72 Year
  Sex: Male
  Weight: 79.2 kg

DRUGS (8)
  1. PROPRANOLOL 10MG TAB [Concomitant]
  2. MELOXICAM 15MG TAB [Concomitant]
  3. TAMSULOSIN HCL 0.4MG CAP [Concomitant]
  4. TRIAMCINOLONE ACETONIDE 0.1% OINT [Concomitant]
  5. CHOLECALCIFEROL (VIT D3) 2,000UNIT TAB [Concomitant]
  6. HARVONI [Suspect]
     Active Substance: LEDIPASVIR\SOFOSBUVIR
     Indication: HEPATITIS C
  7. RIBAVIRIN 1000 MG/DAY [Concomitant]
  8. LISINOPRIL 5MG TAB [Concomitant]
     Active Substance: LISINOPRIL

REACTIONS (3)
  - Hepatic mass [None]
  - Hepatocellular carcinoma [None]
  - Hepatic lesion [None]
